FAERS Safety Report 9365651 (Version 1)
Quarter: 2013Q2

REPORT INFORMATION
  Report Type: Spontaneous
  Country: US (occurrence: None)
  Receive Date: 20130624
  Receipt Date: 20130624
  Transmission Date: 20140414
  Serious: Yes (Hospitalization)
  Sender: FDA-Public Use
  Company Number: None

PATIENT
  Age: 61 Year
  Sex: 0

DRUGS (2)
  1. CIPROFLOXACIN [Suspect]
  2. MESALAMINE [Suspect]

REACTIONS (2)
  - Renal failure acute [None]
  - Haematuria [None]
